FAERS Safety Report 19947417 (Version 2)
Quarter: 2021Q4

REPORT INFORMATION
  Report Type: Report from Study
  Country: BE (occurrence: BE)
  Receive Date: 20211012
  Receipt Date: 20211206
  Transmission Date: 20220303
  Serious: Yes (Other)
  Sender: FDA-Public Use
  Company Number: BE-ROCHE-2625954

PATIENT
  Age: 71 Year
  Sex: Female
  Weight: 76.9 kg

DRUGS (49)
  1. ETOPOSIDE [Suspect]
     Active Substance: ETOPOSIDE
     Indication: Small cell lung cancer extensive stage
     Dosage: 187 MILLIGRAM
     Route: 065
     Dates: start: 20200506
  2. CARBOPLATIN [Suspect]
     Active Substance: CARBOPLATIN
     Indication: Small cell lung cancer extensive stage
     Dosage: 626 MILLIGRAM
     Route: 065
     Dates: start: 20200506
  3. ATEZOLIZUMAB [Suspect]
     Active Substance: ATEZOLIZUMAB
     Indication: Small cell lung cancer extensive stage
     Dosage: DATE OF MOST RECENT DOSE PRIOR TO AE ONSET: 06/MAY/2020 SUBSEQUENT DOSE: 02/JUN/2020
     Route: 041
     Dates: start: 20200506
  4. ATEZOLIZUMAB [Suspect]
     Active Substance: ATEZOLIZUMAB
     Dosage: UNK
  5. HYCAMTIN [Concomitant]
     Active Substance: TOPOTECAN HYDROCHLORIDE
     Dosage: UNK, START DATE: 10-DEC-2020
     Dates: end: 20210429
  6. ACETAMINOPHEN [Concomitant]
     Active Substance: ACETAMINOPHEN
     Dosage: UNK
     Dates: start: 20200507, end: 202005
  7. ACETAMINOPHEN [Concomitant]
     Active Substance: ACETAMINOPHEN
     Dosage: UNK
     Dates: start: 20201228
  8. CUMINUM CYMINUM OIL [Concomitant]
     Dosage: UNK, START DATE 21-JUN-2020
  9. TRAMADOL [Concomitant]
     Active Substance: TRAMADOL
     Dosage: UNK, START DATE: 02-APR-2021
  10. LIPEGFILGRASTIM [Concomitant]
     Active Substance: LIPEGFILGRASTIM
     Dosage: UNK UNK, MONTHLY, START DATE: 15-DEC-2020
  11. ASPIRIN [Concomitant]
     Active Substance: ASPIRIN
     Dosage: UNK, START DATE: 07-MAY-2020
     Dates: end: 20200602
  12. BECLOMETHASONE DIPROPIONATE\FORMOTEROL FUMARATE [Concomitant]
     Active Substance: BECLOMETHASONE DIPROPIONATE\FORMOTEROL FUMARATE
     Dosage: UNK, START DATE: 29-APR-2021
  13. ENOXAPARIN [Concomitant]
     Active Substance: ENOXAPARIN
     Dosage: UNK, START DATE: 29-APR-2021
  14. METHYLPREDNISOLONE [Concomitant]
     Active Substance: METHYLPREDNISOLONE
     Dosage: UNK
     Dates: start: 20210305, end: 20210427
  15. METHYLPREDNISOLONE [Concomitant]
     Active Substance: METHYLPREDNISOLONE
     Dosage: UNK
     Dates: start: 20210428
  16. METHYLPREDNISOLONE [Concomitant]
     Active Substance: METHYLPREDNISOLONE
     Dosage: PROGRESSIVE DISEASE
     Dates: start: 20201209, end: 20210304
  17. OXALIPLATIN [Concomitant]
     Active Substance: OXALIPLATIN
     Indication: Neoplasm malignant
     Dosage: UNK
  18. ONDANSETRON [Concomitant]
     Active Substance: ONDANSETRON
     Dosage: 8 MILLIGRAM
     Dates: start: 20200630, end: 20200630
  19. ONDANSETRON [Concomitant]
     Active Substance: ONDANSETRON
     Dosage: 8 MILLIGRAM
     Dates: start: 20201006, end: 20201008
  20. ONDANSETRON [Concomitant]
     Active Substance: ONDANSETRON
     Dosage: 8 MILLIGRAM
     Dates: start: 20200602, end: 20200604
  21. ONDANSETRON [Concomitant]
     Active Substance: ONDANSETRON
     Dosage: 8 MILLIGRAM
     Dates: start: 20200804, end: 20200806
  22. ONDANSETRON [Concomitant]
     Active Substance: ONDANSETRON
     Dosage: 8 MILLIGRAM
     Dates: start: 20201006, end: 20201006
  23. ONDANSETRON [Concomitant]
     Active Substance: ONDANSETRON
     Dosage: 8 MILLIGRAM
     Dates: start: 20200602, end: 20200602
  24. ONDANSETRON [Concomitant]
     Active Substance: ONDANSETRON
     Dosage: 8 MILLIGRAM
     Dates: start: 20200506, end: 20200506
  25. ONDANSETRON [Concomitant]
     Active Substance: ONDANSETRON
     Dosage: 8 MILLIGRAM
     Dates: start: 20200901, end: 20200903
  26. ONDANSETRON [Concomitant]
     Active Substance: ONDANSETRON
     Dosage: 8 MILLIGRAM
     Dates: start: 20200630, end: 20200702
  27. ONDANSETRON [Concomitant]
     Active Substance: ONDANSETRON
     Dosage: 8 MILLIGRAM, QD
     Dates: start: 20200506, end: 20200508
  28. ONDANSETRON [Concomitant]
     Active Substance: ONDANSETRON
     Dosage: 8 MILLIGRAM
     Dates: start: 20200804, end: 20200804
  29. ONDANSETRON [Concomitant]
     Active Substance: ONDANSETRON
     Dosage: 8 MILLIGRAM
     Dates: start: 20200901, end: 20200901
  30. INFLUENZA VIRUS VACCINE [Concomitant]
     Active Substance: INFLUENZA VIRUS VACCINE
     Dosage: UNK, START DATE: 04-NOV-2020
     Dates: end: 20201104
  31. HUMAN RED BLOOD CELL [Concomitant]
     Active Substance: HUMAN RED BLOOD CELL
     Dosage: UNK
     Dates: start: 20200616, end: 20200616
  32. HUMAN RED BLOOD CELL [Concomitant]
     Active Substance: HUMAN RED BLOOD CELL
     Dosage: UNK
     Dates: start: 20210216
  33. HUMAN RED BLOOD CELL [Concomitant]
     Active Substance: HUMAN RED BLOOD CELL
     Dosage: UNK
     Dates: start: 20200825, end: 20200825
  34. FLUOROURACIL [Concomitant]
     Active Substance: FLUOROURACIL
     Indication: Neoplasm malignant
     Dosage: UNK
  35. ALIZAPRIDE [Concomitant]
     Active Substance: ALIZAPRIDE
     Dosage: 50 MILLIGRAM
     Dates: start: 20200701, end: 20200702
  36. ALIZAPRIDE [Concomitant]
     Active Substance: ALIZAPRIDE
     Dosage: UNK
     Dates: start: 20201209
  37. ALIZAPRIDE [Concomitant]
     Active Substance: ALIZAPRIDE
     Dosage: 50 MILLIGRAM
     Dates: start: 20201007, end: 20201008
  38. ALIZAPRIDE [Concomitant]
     Active Substance: ALIZAPRIDE
     Dosage: 50 MILLIGRAM
     Dates: start: 20200805, end: 20200806
  39. ALIZAPRIDE [Concomitant]
     Active Substance: ALIZAPRIDE
     Dosage: 50 MILLIGRAM
     Dates: start: 20200603, end: 20200604
  40. ALIZAPRIDE [Concomitant]
     Active Substance: ALIZAPRIDE
     Dosage: 50 MILLIGRAM
     Dates: start: 20200902, end: 20200903
  41. ALIZAPRIDE [Concomitant]
     Active Substance: ALIZAPRIDE
     Dosage: 50 MILLIGRAM, QD
     Dates: start: 20200507, end: 20200508
  42. FUROSEMIDE [Concomitant]
     Active Substance: FUROSEMIDE
     Indication: Prophylaxis
     Dosage: UNK
     Dates: start: 20210216
  43. FUROSEMIDE [Concomitant]
     Active Substance: FUROSEMIDE
     Dosage: UNK
     Dates: start: 20200616, end: 20200616
  44. FUROSEMIDE [Concomitant]
     Active Substance: FUROSEMIDE
     Dosage: UNK
     Dates: start: 20200825, end: 20200825
  45. CELECOXIB [Concomitant]
     Active Substance: CELECOXIB
     Dosage: UNK, START DATE: 05-MAR-2021
  46. FOSFOMYCIN [Concomitant]
     Active Substance: FOSFOMYCIN
     Dosage: UNK, START DATE: 29-APR-2021
     Dates: end: 20210429
  47. PANTOPRAZOLE [Concomitant]
     Active Substance: PANTOPRAZOLE
     Indication: Gastrectomy
     Dosage: UNK
     Dates: start: 201311
  48. BUTCHERS BROOM [Concomitant]
     Dosage: UNK
     Dates: start: 2010, end: 20201001
  49. PLATELETS [Concomitant]
     Active Substance: HUMAN PLATELET, ALLOGENIC
     Dosage: UNK, START DATE: 20-MAY-2020
     Dates: end: 20200520

REACTIONS (17)
  - Neutropenia [Recovered/Resolved]
  - Thrombocytopenia [Recovered/Resolved]
  - Sputum abnormal [Recovered/Resolved]
  - Constipation [Recovered/Resolved]
  - Back pain [Recovering/Resolving]
  - Breast pain [Recovering/Resolving]
  - Cough [Recovering/Resolving]
  - Alopecia [Recovered/Resolved]
  - Dyspnoea exertional [Recovering/Resolving]
  - Anaemia [Recovered/Resolved]
  - Decreased appetite [Recovered/Resolved]
  - Paraesthesia [Recovering/Resolving]
  - Rash [Recovering/Resolving]
  - Headache [Recovered/Resolved]
  - Tremor [Recovering/Resolving]
  - Fatigue [Recovering/Resolving]
  - Nausea [Recovering/Resolving]

NARRATIVE: CASE EVENT DATE: 20200507
